FAERS Safety Report 24054433 (Version 1)
Quarter: 2024Q3

REPORT INFORMATION
  Report Type: Spontaneous
  Country: US (occurrence: US)
  Receive Date: 20240705
  Receipt Date: 20240705
  Transmission Date: 20241016
  Serious: No
  Sender: STRIDES
  Company Number: None

PATIENT
  Age: 15 Year
  Sex: Male

DRUGS (7)
  1. MEMANTINE [Suspect]
     Active Substance: MEMANTINE
     Indication: Malignant catatonia
     Dosage: 2.5 MG, BID
     Route: 065
  2. MEMANTINE [Suspect]
     Active Substance: MEMANTINE
     Dosage: 5 MG, BID, DAY 3
     Route: 065
  3. MEMANTINE [Suspect]
     Active Substance: MEMANTINE
     Dosage: 7.5 MG, BID, DAY 4
     Route: 065
  4. MEMANTINE [Suspect]
     Active Substance: MEMANTINE
     Dosage: 10 MG, BID, DAY 5
     Route: 065
  5. LORAZEPAM [Concomitant]
     Active Substance: LORAZEPAM
     Indication: Malignant catatonia
     Dosage: UNK
     Route: 065
  6. DIVALPROEX SODIUM [Concomitant]
     Active Substance: DIVALPROEX SODIUM
     Indication: Malignant catatonia
     Dosage: 750 MG, DR LOADING DOSE- DAY 8
     Route: 065
  7. DIVALPROEX SODIUM [Concomitant]
     Active Substance: DIVALPROEX SODIUM
     Dosage: 375 MG, BID, DR
     Route: 065

REACTIONS (1)
  - Off label use [Unknown]
